FAERS Safety Report 12958374 (Version 2)
Quarter: 2016Q4

REPORT INFORMATION
  Report Type: Spontaneous
  Country: US (occurrence: US)
  Receive Date: 20161121
  Receipt Date: 20161215
  Transmission Date: 20170207
  Serious: Yes (Death)
  Sender: FDA-Public Use
  Company Number: US-ROCHE-1856995

PATIENT
  Age: 77 Year
  Sex: Male
  Weight: 73 kg

DRUGS (5)
  1. ACTIVASE [Suspect]
     Active Substance: ALTEPLASE
     Indication: ISCHAEMIC STROKE
     Route: 040
     Dates: start: 20160506, end: 20160506
  2. ATORVASTATIN [Concomitant]
     Active Substance: ATORVASTATIN
     Dosage: PRIOR TO ADMISSION
     Route: 048
  3. METFORMIN [Concomitant]
     Active Substance: METFORMIN HYDROCHLORIDE
     Dosage: PRIOR TO ADMISSION
     Route: 048
  4. ACTIVASE [Suspect]
     Active Substance: ALTEPLASE
     Dosage: 1 MINUTE AFTER BOLUS
     Route: 042
     Dates: start: 20160506, end: 20160506
  5. ASPIRIN. [Concomitant]
     Active Substance: ASPIRIN
     Dosage: PRIOR TO ADMISSION
     Route: 048

REACTIONS (1)
  - Haemorrhage intracranial [Fatal]

NARRATIVE: CASE EVENT DATE: 20160506
